FAERS Safety Report 8242428-8 (Version None)
Quarter: 2012Q1

REPORT INFORMATION
  Report Type: 
  Country: None (occurrence: None)
  Receive Date: 20120329
  Receipt Date: 20120319
  Transmission Date: 20120608
  Serious: Yes (Hospitalization)
  Sender: FDA-Public Use
  Company Number: US-SANOFI-AVENTIS-2012SA019536

PATIENT
  Sex: Male

DRUGS (1)
  1. PLAVIX [Suspect]
     Dates: start: 20110601

REACTIONS (1)
  - CERVICAL VERTEBRAL FRACTURE [None]
